FAERS Safety Report 7952595-9 (Version None)
Quarter: 2011Q4

REPORT INFORMATION
  Report Type: 
  Country: None (occurrence: None)
  Receive Date: 20111201
  Receipt Date: 20111118
  Transmission Date: 20120403
  Serious: Yes (Other)
  Sender: FDA-Public Use
  Company Number: US-ENDO PHARMACEUTICALS INC.-OPER20110308

PATIENT
  Sex: Male

DRUGS (3)
  1. XANAX [Concomitant]
     Indication: PRODUCT USED FOR UNKNOWN INDICATION
     Dosage: 2 MG
     Route: 048
  2. OPANA [Suspect]
     Indication: PRODUCT USED FOR UNKNOWN INDICATION
     Dosage: 10 MG
     Route: 048
     Dates: start: 20070101
  3. OPANA ER [Suspect]
     Indication: PRODUCT USED FOR UNKNOWN INDICATION
     Route: 048
     Dates: start: 20070101

REACTIONS (9)
  - AGITATION [None]
  - DRUG INEFFECTIVE FOR UNAPPROVED INDICATION [None]
  - WRONG TECHNIQUE IN DRUG USAGE PROCESS [None]
  - DYSPNOEA [None]
  - INSOMNIA [None]
  - TINNITUS [None]
  - DRUG ABUSE [None]
  - SYNCOPE [None]
  - RESPIRATORY DEPRESSION [None]
